FAERS Safety Report 15584713 (Version 2)
Quarter: 2020Q3

REPORT INFORMATION
  Report Type: Spontaneous
  Country: FR (occurrence: FR)
  Receive Date: 20181102
  Receipt Date: 20200701
  Transmission Date: 20201102
  Serious: Yes (Other)
  Sender: FDA-Public Use
  Company Number: FR-SEATTLE GENETICS-2018SGN02789

PATIENT
  Age: 72 Year
  Sex: Male

DRUGS (2)
  1. ADCETRIS [Suspect]
     Active Substance: BRENTUXIMAB VEDOTIN
     Indication: CUTANEOUS T-CELL LYMPHOMA
     Dosage: UNK
     Route: 065
  2. NIVOLUMAB [Suspect]
     Active Substance: NIVOLUMAB
     Indication: CUTANEOUS T-CELL LYMPHOMA
     Dosage: UNK UNK, Q2WEEKS
     Route: 065

REACTIONS (4)
  - Alopecia [Unknown]
  - Diarrhoea [Unknown]
  - Diabetes mellitus [Unknown]
  - Intentional product use issue [Unknown]
